FAERS Safety Report 5338548-8 (Version None)
Quarter: 2007Q2

REPORT INFORMATION
  Report Type: 
  Country: None (occurrence: None)
  Receive Date: 20070530
  Receipt Date: 20070521
  Transmission Date: 20071010
  Serious: Yes (Life-Threatening)
  Sender: FDA-Public Use
  Company Number: ES-AVENTIS-200713172GDDC

PATIENT
  Age: 69 Year
  Sex: Male

DRUGS (2)
  1. TAXOTERE [Suspect]
     Route: 042
     Dates: start: 20070307, end: 20070328
  2. CISPLATIN [Concomitant]
     Route: 042
     Dates: start: 20070307, end: 20070328

REACTIONS (6)
  - HYPERHIDROSIS [None]
  - HYPERTENSION [None]
  - INFUSION RELATED REACTION [None]
  - LOSS OF CONSCIOUSNESS [None]
  - MALAISE [None]
  - PHARMACEUTICAL PRODUCT COMPLAINT [None]
